FAERS Safety Report 21529939 (Version 1)
Quarter: 2022Q4

REPORT INFORMATION
  Report Type: Spontaneous
  Country: US (occurrence: US)
  Receive Date: 20221031
  Receipt Date: 20221031
  Transmission Date: 20230113
  Serious: Yes (Other)
  Sender: FDA-Public Use
  Company Number: US-AQUESTIVE THERAPEUTICS, INC.-2022AQU00108

PATIENT
  Age: 2 Day
  Sex: Male

DRUGS (1)
  1. ONDANSETRON [Suspect]
     Active Substance: ONDANSETRON
     Dosage: 2 MG INJECTED INTRAMUSCULARLY INTO THE PUBIC SYMPHYSIS AREA
     Route: 030

REACTIONS (4)
  - Incorrect route of product administration [Recovered/Resolved]
  - Wrong product administered [Recovered/Resolved]
  - Electrocardiogram QT prolonged [Recovered/Resolved]
  - Bradycardia [Recovered/Resolved]
